FAERS Safety Report 8192877-1 (Version None)
Quarter: 2012Q1

REPORT INFORMATION
  Report Type: 
  Country: None (occurrence: None)
  Receive Date: 20120308
  Receipt Date: 20120224
  Transmission Date: 20120608
  Serious: Yes (Hospitalization)
  Sender: FDA-Public Use
  Company Number: 2012SP000701

PATIENT
  Age: 72 Year
  Sex: Male

DRUGS (8)
  1. ASPENON [Concomitant]
     Indication: ARRHYTHMIA
     Route: 048
  2. LENDORMIN [Concomitant]
     Indication: INSOMNIA
     Route: 048
  3. ALVESCO [Suspect]
     Indication: ASTHMA
     Route: 055
     Dates: start: 20081128
  4. GASTER /00706001/ [Concomitant]
     Indication: GASTRITIS
     Route: 048
  5. THEO-DUR [Concomitant]
     Indication: ASTHMA
     Route: 048
  6. TERSIGAN [Concomitant]
     Indication: ASTHMA
     Route: 055
  7. SINGULAIR [Concomitant]
     Indication: ASTHMA
  8. MUCOSOLVAN [Concomitant]
     Indication: ASTHMA
     Route: 048

REACTIONS (1)
  - BRONCHITIS BACTERIAL [None]
